FAERS Safety Report 9493709 (Version 6)
Quarter: 2013Q4

REPORT INFORMATION
  Report Type: Spontaneous
  Country: JP (occurrence: JP)
  Receive Date: 20130902
  Receipt Date: 20131205
  Transmission Date: 20140711
  Serious: Yes (Hospitalization, Other)
  Sender: FDA-Public Use
  Company Number: JP-JNJFOC-20130810650

PATIENT
  Age: 54 Year
  Sex: Male
  Weight: 85 kg

DRUGS (7)
  1. TRAMCET [Suspect]
     Indication: PAIN
     Dosage: 1 DOSE TWICE DAILY
     Route: 048
     Dates: start: 20130826, end: 20130930
  2. TRAMCET [Suspect]
     Indication: PAIN
     Dosage: 4 DOSE(S) X 1 PER 1 DAY
     Route: 048
     Dates: start: 201206, end: 20130815
  3. EXFORGE [Suspect]
     Indication: PAIN
     Dosage: 1 PER DAY
     Route: 048
     Dates: end: 20130815
  4. ARTIST [Suspect]
     Indication: PAIN
     Dosage: 1 PER DAY
     Route: 048
     Dates: end: 20130815
  5. BAYASPIRIN [Concomitant]
     Indication: PAIN
     Dosage: ONCE DAILY
     Route: 048
  6. TAKEPRON [Concomitant]
     Indication: PAIN
     Dosage: ONCE A DAY
     Route: 048
  7. LOXONIN [Concomitant]
     Route: 062
     Dates: end: 20130815

REACTIONS (7)
  - Renal failure acute [Not Recovered/Not Resolved]
  - Dehydration [Unknown]
  - Somnolence [Recovered/Resolved]
  - Altered state of consciousness [Recovered/Resolved]
  - Blood pressure decreased [Recovered/Resolved]
  - Decreased appetite [Unknown]
  - Inadequate analgesia [Unknown]
